FAERS Safety Report 6270048-3 (Version None)
Quarter: 2009Q3

REPORT INFORMATION
  Report Type: 
  Country: None (occurrence: None)
  Receive Date: 20090714
  Receipt Date: 20090629
  Transmission Date: 20100115
  Serious: Yes (Hospitalization, Other)
  Sender: FDA-Public Use
  Company Number: ADE2009-0697

PATIENT
  Age: 67 Year
  Sex: Male

DRUGS (14)
  1. FLUOXETINE [Suspect]
     Indication: DEPRESSION
     Dosage: 20-40MG, DAILY, ORAL
     Route: 048
     Dates: start: 20090430
  2. CIPROFLOXACIN [Suspect]
     Indication: ABSCESS
     Dosage: 400MG, DAILY, IV
     Route: 042
     Dates: end: 20090504
  3. ACETAZOLAMIDE [Suspect]
     Dosage: 250MG-BID-IV
     Route: 042
     Dates: start: 20090506
  4. MELATONIN [Suspect]
     Indication: SLEEP DISORDER
     Dosage: 3MG-DAILY-ORAL
     Route: 048
     Dates: start: 20090422
  5. TYGACIL [Suspect]
     Indication: ABSCESS
     Dosage: 50MG-BID-ORAL
     Route: 048
     Dates: end: 20090504
  6. ASPIRIN [Concomitant]
  7. BISOPROLOL 2.5MG [Concomitant]
  8. DIGOXIN [Concomitant]
  9. FUROSEMIDE [Concomitant]
  10. LANSOPRAZOLE [Concomitant]
  11. RAMIPRIL [Concomitant]
  12. SALBUTAMOL 5MG [Concomitant]
  13. SIMVASTATIN [Concomitant]
  14. SPIRONOLACTONE 25GM [Concomitant]

REACTIONS (2)
  - ALANINE AMINOTRANSFERASE INCREASED [None]
  - ASPARTATE AMINOTRANSFERASE INCREASED [None]
